FAERS Safety Report 7554396-2 (Version None)
Quarter: 2011Q2

REPORT INFORMATION
  Report Type: 
  Country: None (occurrence: None)
  Receive Date: 20110617
  Receipt Date: 20110606
  Transmission Date: 20111010
  Serious: Yes (Other)
  Sender: FDA-Public Use
  Company Number: CA-ROCHE-751749

PATIENT
  Sex: Female
  Weight: 111 kg

DRUGS (15)
  1. ARAVA [Concomitant]
  2. CARDIZEM [Concomitant]
     Indication: HYPERTENSION
     Route: 048
  3. ESCITALOPRAM [Concomitant]
  4. TOCILIZUMAB [Suspect]
     Route: 042
     Dates: start: 20110324
  5. CARDIZEM [Concomitant]
     Route: 048
     Dates: start: 20050101
  6. OMEGA 3 PLUS [Concomitant]
     Dosage: DRUG REPORTED: OMEGA 3
  7. AVAPRO [Concomitant]
     Indication: HYPERTENSION
     Route: 048
     Dates: start: 20090101
  8. CLONAZEPAM [Concomitant]
  9. TOCILIZUMAB [Suspect]
     Route: 042
     Dates: start: 20110207, end: 20110207
  10. DICLOFENAC SODIUM [Concomitant]
     Indication: RHEUMATOID ARTHRITIS
     Route: 048
     Dates: start: 20050101
  11. TOCILIZUMAB [Suspect]
     Indication: RHEUMATOID ARTHRITIS
     Dosage: FORM: INFUSION
     Route: 042
     Dates: start: 20101208, end: 20101208
  12. ORENCIA [Suspect]
     Route: 042
     Dates: start: 20100501, end: 20101101
  13. PANTOPRAZOLE SODIUM [Concomitant]
     Route: 048
     Dates: start: 20050101
  14. CARDIZEM [Concomitant]
     Dosage: DOSAGE INCREASED
     Route: 048
  15. CALCIUM CARBONATE [Concomitant]

REACTIONS (4)
  - BLOOD PRESSURE INCREASED [None]
  - NASAL CONGESTION [None]
  - PAROTID GLAND ENLARGEMENT [None]
  - NASOPHARYNGITIS [None]
